FAERS Safety Report 15793386 (Version 1)
Quarter: 2019Q1

REPORT INFORMATION
  Report Type: Spontaneous
  Country: US (occurrence: US)
  Receive Date: 20190104
  Receipt Date: 20190104
  Transmission Date: 20190417
  Serious: Yes (Hospitalization)
  Sender: FDA-Public Use
  Company Number: None

PATIENT
  Sex: Male

DRUGS (9)
  1. DEXILANT [Concomitant]
     Active Substance: DEXLANSOPRAZOLE
  2. ESBRIET [Suspect]
     Active Substance: PIRFENIDONE
     Indication: IDIOPATHIC PULMONARY FIBROSIS
     Route: 048
     Dates: start: 20180613
  3. TAMSULOSIN [Concomitant]
     Active Substance: TAMSULOSIN
  4. ZOLPIDEM [Concomitant]
     Active Substance: ZOLPIDEM\ZOLPIDEM TARTRATE
  5. SYMBICORT [Concomitant]
     Active Substance: BUDESONIDE\FORMOTEROL FUMARATE DIHYDRATE
  6. ATORVASTIN [Concomitant]
     Active Substance: ATORVASTATIN
  7. IPRATROPIUM [Concomitant]
     Active Substance: IPRATROPIUM
  8. BENZONATE [Concomitant]
     Active Substance: BENZONATATE
  9. TRIAMT/HCTZ [Concomitant]
     Active Substance: HYDROCHLOROTHIAZIDE\TRIAMTERENE

REACTIONS (1)
  - Hospitalisation [None]
